FAERS Safety Report 8514021-0 (Version None)
Quarter: 2012Q3

REPORT INFORMATION
  Report Type: 
  Country: None (occurrence: None)
  Receive Date: 20120717
  Receipt Date: 20120705
  Transmission Date: 20120928
  Serious: Yes (Other)
  Sender: FDA-Public Use
  Company Number: ES-009507513-1207ESP002529

PATIENT

DRUGS (5)
  1. AMITRIPTYLINE HCL [Suspect]
     Dosage: 75 MG, QD
     Route: 048
     Dates: start: 20120705
  2. AMITRIPTYLINE HCL [Suspect]
     Indication: DEPRESSION
     Dosage: 75 MG, QD
     Dates: start: 20040401, end: 20120501
  3. AMITRIPTYLINE HCL [Suspect]
     Dosage: 50 MG, QD
     Route: 048
     Dates: start: 20120501, end: 20120601
  4. HEMICRANEAL (ACETAMINOPHEN (+) CAFFEINE (+) ERGOTAMINE TARTRATE) [Concomitant]
     Dosage: UNK, PRN
  5. CLONAZEPAM [Concomitant]
     Dosage: UNK, QD

REACTIONS (1)
  - DIZZINESS [None]
